FAERS Safety Report 7738942-1 (Version None)
Quarter: 2011Q3

REPORT INFORMATION
  Report Type: 
  Country: None (occurrence: None)
  Receive Date: 20110909
  Receipt Date: 20110830
  Transmission Date: 20111222
  Serious: No
  Sender: FDA-Public Use
  Company Number: US-BIOGENIDEC-2011BI023164

PATIENT
  Age: 45 Year
  Sex: Female

DRUGS (2)
  1. AVONEX [Concomitant]
     Indication: MULTIPLE SCLEROSIS
     Route: 030
     Dates: start: 19981019
  2. TYSABRI [Suspect]
     Indication: MULTIPLE SCLEROSIS
     Route: 042
     Dates: start: 20110519, end: 20110718

REACTIONS (5)
  - SINUSITIS [None]
  - PARAESTHESIA [None]
  - URINARY TRACT INFECTION [None]
  - ARTHRALGIA [None]
  - SENSATION OF HEAVINESS [None]
